FAERS Safety Report 6299266-5 (Version None)
Quarter: 2009Q3

REPORT INFORMATION
  Report Type: 
  Country: None (occurrence: None)
  Receive Date: 20090806
  Receipt Date: 20090730
  Transmission Date: 20100115
  Serious: No
  Sender: FDA-Public Use
  Company Number: US-B.I. PHARMACEUTICALS,INC./RIDGEFIELD-2009-BP-09103BP

PATIENT
  Age: 76 Year
  Sex: Female

DRUGS (5)
  1. ZANTAC 150 [Suspect]
     Indication: DYSPEPSIA
     Route: 048
     Dates: start: 20090701
  2. ZANTAC 150 [Suspect]
     Indication: HYPERCHLORHYDRIA
  3. IRON [Concomitant]
     Indication: ANAEMIA
     Dosage: 325 MG
     Route: 048
  4. IMDUR [Concomitant]
     Indication: CARDIAC DISORDER
  5. PROTONIX [Concomitant]
     Indication: GASTROOESOPHAGEAL REFLUX DISEASE

REACTIONS (1)
  - ABDOMINAL DISCOMFORT [None]
